FAERS Safety Report 13242912 (Version 1)
Quarter: 2017Q1

REPORT INFORMATION
  Report Type: Spontaneous
  Country: US (occurrence: US)
  Receive Date: 20170216
  Receipt Date: 20170216
  Transmission Date: 20170428
  Serious: Yes (Life-Threatening, Hospitalization)
  Sender: FDA-Public Use
  Company Number: None

PATIENT
  Age: 70 Year
  Sex: Female
  Weight: 70.65 kg

DRUGS (12)
  1. ATORVASTATINE [Concomitant]
     Active Substance: ATORVASTATIN
  2. LISINOPRIL. [Suspect]
     Active Substance: LISINOPRIL
     Indication: STENT PLACEMENT
     Dosage: ?          QUANTITY:1 TABLET(S);?
     Route: 048
     Dates: start: 20170116, end: 20170209
  3. VESICARE [Concomitant]
     Active Substance: SOLIFENACIN SUCCINATE
  4. IBUPROFEN. [Concomitant]
     Active Substance: IBUPROFEN
  5. ADVIL PM [Concomitant]
     Active Substance: DIPHENHYDRAMINE CITRATE\IBUPROFEN
  6. PANTOPRAOLE [Concomitant]
  7. ASPIRIN. [Concomitant]
     Active Substance: ASPIRIN
  8. METOPROLOL. [Concomitant]
     Active Substance: METOPROLOL
  9. PROAIR HFA [Concomitant]
     Active Substance: ALBUTEROL SULFATE
  10. BRILINTA [Concomitant]
     Active Substance: TICAGRELOR
  11. RANITIDINE. [Concomitant]
     Active Substance: RANITIDINE
  12. WAL--ITIN LORATADINE ANTIHISTAMINE [Concomitant]

REACTIONS (3)
  - Lip swelling [None]
  - Swollen tongue [None]
  - Throat tightness [None]

NARRATIVE: CASE EVENT DATE: 20170207
